FAERS Safety Report 12586576 (Version 1)
Quarter: 2016Q3

REPORT INFORMATION
  Report Type: Spontaneous
  Country: ES (occurrence: ES)
  Receive Date: 20160725
  Receipt Date: 20160725
  Transmission Date: 20161109
  Serious: Yes (Other)
  Sender: FDA-Public Use
  Company Number: ES-SA-2016SA132467

PATIENT
  Age: 74 Year
  Sex: Male

DRUGS (1)
  1. BCG FOR IMMUNOTHERAPY [Suspect]
     Active Substance: BACILLUS CALMETTE-GUERIN ANTIGEN, UNSPECIFIED SUBSTRAIN
     Indication: BLADDER CANCER
     Route: 043
     Dates: start: 2008, end: 2008

REACTIONS (3)
  - Pollakiuria [Not Recovered/Not Resolved]
  - Urinary bladder atrophy [Not Recovered/Not Resolved]
  - Urethral syndrome [Recovering/Resolving]
